FAERS Safety Report 11864448 (Version 1)
Quarter: 2015Q4

REPORT INFORMATION
  Report Type: Report from Study
  Country: CA (occurrence: CA)
  Receive Date: 20151223
  Receipt Date: 20151223
  Transmission Date: 20160305
  Serious: Yes (Hospitalization)
  Sender: FDA-Public Use
  Company Number: CA-JNJFOC-20151218313

PATIENT
  Sex: Male

DRUGS (1)
  1. REMICADE [Suspect]
     Active Substance: INFLIXIMAB
     Indication: COLITIS
     Route: 042

REACTIONS (6)
  - Tremor [Unknown]
  - Eating disorder [Unknown]
  - Asthenia [Unknown]
  - Renal disorder [Unknown]
  - Abasia [Unknown]
  - Hypersomnia [Unknown]
